FAERS Safety Report 10386667 (Version 1)
Quarter: 2014Q3

REPORT INFORMATION
  Report Type: Spontaneous
  Country: MX (occurrence: MX)
  Receive Date: 20140815
  Receipt Date: 20140815
  Transmission Date: 20150326
  Serious: Yes (Life-Threatening)
  Sender: FDA-Public Use
  Company Number: MX-AMGEN-MEXSP2014061795

PATIENT
  Age: 45 Year
  Sex: Female

DRUGS (5)
  1. COUMARIN W/TROXERUTIN [Concomitant]
     Indication: THROMBOPHLEBITIS
     Dosage: 90 MG OF TROXERUTINE / 15MG OF COUMARIN (90 MG, 1 IN 1 D)
     Route: 048
     Dates: start: 20140722
  2. GEMZAR [Concomitant]
     Active Substance: GEMCITABINE HYDROCHLORIDE
     Indication: BREAST CANCER
     Dosage: 2200 MG, 1 IN 1 WK
     Route: 042
     Dates: start: 20140722
  3. ACENOCOUMAROL [Concomitant]
     Active Substance: ACENOCOUMAROL
     Indication: THROMBOPHLEBITIS
     Dosage: 4 MG, 1 IN 1 D
     Route: 048
     Dates: start: 20140722
  4. NEULASTIM [Suspect]
     Active Substance: PEGFILGRASTIM
     Indication: NEUTROPENIA
     Dosage: JUST ONE DOSE (6 MG, 1 IN 1 TOTAL)
     Route: 058
     Dates: start: 20140722, end: 20140723
  5. CARBOPLATIN. [Concomitant]
     Active Substance: CARBOPLATIN
     Indication: BREAST CANCER
     Dosage: 500 MG, 1 IN 1 CYCLICAL
     Route: 042
     Dates: start: 20140722

REACTIONS (5)
  - Vertigo [Recovering/Resolving]
  - Hyperhidrosis [Recovered/Resolved]
  - Erythema [Recovered/Resolved]
  - Abdominal pain [Recovering/Resolving]
  - Dyspnoea [Recovered/Resolved]

NARRATIVE: CASE EVENT DATE: 20140722
